FAERS Safety Report 7009215-X (Version None)
Quarter: 2010Q3

REPORT INFORMATION
  Report Type: 
  Country: None (occurrence: None)
  Receive Date: 20100921
  Receipt Date: 20100909
  Transmission Date: 20110219
  Serious: Yes (Hospitalization, Other)
  Sender: FDA-Public Use
  Company Number: 2010AC000290

PATIENT
  Age: 53 Year
  Sex: Male

DRUGS (2)
  1. DIGOXIN [Suspect]
     Indication: PRODUCT USED FOR UNKNOWN INDICATION
     Dosage: PO
     Route: 048
     Dates: start: 20060301, end: 20080601
  2. MILRINONE [Concomitant]

REACTIONS (19)
  - ANXIETY [None]
  - ARRHYTHMIA [None]
  - CARDIAC DISORDER [None]
  - CHOLELITHIASIS [None]
  - CONGESTIVE CARDIOMYOPATHY [None]
  - DECREASED APPETITE [None]
  - DIASTOLIC DYSFUNCTION [None]
  - ECONOMIC PROBLEM [None]
  - HEART RATE IRREGULAR [None]
  - LYMPHADENOPATHY MEDIASTINAL [None]
  - MULTIPLE INJURIES [None]
  - NAUSEA [None]
  - PAIN [None]
  - PALPITATIONS [None]
  - PULMONARY VALVE INCOMPETENCE [None]
  - RENAL CYST [None]
  - TRICUSPID VALVE INCOMPETENCE [None]
  - VENTRICULAR TACHYCARDIA [None]
  - VOMITING [None]
